FAERS Safety Report 6885494-4 (Version None)
Quarter: 2010Q3

REPORT INFORMATION
  Report Type: 
  Country: None (occurrence: None)
  Receive Date: 20100729
  Receipt Date: 20080204
  Transmission Date: 20110219
  Serious: Yes (Other)
  Sender: FDA-Public Use
  Company Number: US-PFIZER INC-2007096062

PATIENT
  Sex: Female
  Weight: 112.5 kg

DRUGS (1)
  1. CELEBREX [Suspect]
     Indication: CERVIX DISORDER
     Route: 048
     Dates: start: 20071026

REACTIONS (5)
  - BLISTER [None]
  - ERYTHEMA [None]
  - PARAESTHESIA ORAL [None]
  - PRURITUS [None]
  - RASH [None]
